FAERS Safety Report 9788915 (Version 2)
Quarter: 2014Q1

REPORT INFORMATION
  Report Type: Spontaneous
  Country: JP (occurrence: JP)
  Receive Date: 20131230
  Receipt Date: 20140116
  Transmission Date: 20141002
  Serious: Yes (Other)
  Sender: FDA-Public Use
  Company Number: JP-GLAXOSMITHKLINE-B0955962A

PATIENT
  Age: 40 Year
  Sex: Female

DRUGS (4)
  1. SERETIDE (50MCG/250MCG) [Suspect]
     Indication: ASTHMA
     Dosage: 250MCG FIVE TIMES PER DAY
     Route: 055
     Dates: start: 20131225, end: 20131225
  2. THEODUR [Concomitant]
     Indication: COUGH
     Dosage: 100MG TWICE PER DAY
     Route: 048
     Dates: start: 20131225
  3. SINGULAIR [Concomitant]
     Indication: COUGH
     Dosage: 10MG PER DAY
     Route: 048
     Dates: start: 20131225
  4. DIHYDROCODEINE PHOSPHATE [Concomitant]
     Indication: COUGH
     Dosage: 10MG THREE TIMES PER DAY
     Route: 048
     Dates: start: 20131225

REACTIONS (6)
  - Angina pectoris [Unknown]
  - Tremor [Unknown]
  - Asthenia [Unknown]
  - Dyspnoea [Unknown]
  - Overdose [Unknown]
  - Product quality issue [Unknown]
